FAERS Safety Report 4686635-X (Version None)
Quarter: 2005Q2

REPORT INFORMATION
  Report Type: 
  Country: None (occurrence: None)
  Receive Date: 20050608
  Receipt Date: 20050526
  Transmission Date: 20051028
  Serious: Yes (Death, Life-Threatening, Hospitalization, Other)
  Sender: FDA-Public Use
  Company Number: 2005080066

PATIENT
  Sex: Male

DRUGS (13)
  1. VFEND [Suspect]
     Indication: ASPERGILLOMA
     Dates: start: 20050220, end: 20050308
  2. ASPARAGINASE (ASPARAGINASE) [Suspect]
     Indication: ACUTE LYMPHOCYTIC LEUKAEMIA
     Dates: start: 20050209, end: 20050307
  3. VINCRISTINE SULFATE [Suspect]
     Indication: ACUTE LYMPHOCYTIC LEUKAEMIA
     Dates: start: 20050209, end: 20050307
  4. DAUNORUBICIN HYDROCHLORIDE [Suspect]
     Indication: ACUTE LYMPHOCYTIC LEUKAEMIA
     Dates: start: 20050209, end: 20050307
  5. METHOTREXATE SODIUM [Suspect]
     Indication: ACUTE LYMPHOCYTIC LEUKAEMIA
     Dates: start: 20050209, end: 20050307
  6. CYCLOPHOSPHAMIDE [Suspect]
     Indication: ACUTE LYMPHOCYTIC LEUKAEMIA
     Dates: start: 20050209, end: 20050307
  7. VALTREX [Suspect]
     Indication: ASPERGILLOMA
     Dates: start: 20050220, end: 20050308
  8. FUNGIZONE [Suspect]
     Indication: ASPERGILLOMA
     Dates: start: 20050201, end: 20050201
  9. TAZOBAC (PIPERACILLIN SODIUM, TAZOBACTAM SODIUM) [Suspect]
     Indication: ASPERGILLOMA
     Dates: start: 20050212, end: 20050304
  10. TOREM (TORASEMIDE) [Concomitant]
  11. NAVOBAN (TROPISETRON HYDROCHLORIDE) [Concomitant]
  12. BACTRIM [Concomitant]
  13. PREDNISONE [Concomitant]

REACTIONS (10)
  - CARDIAC DISORDER [None]
  - COMA HEPATIC [None]
  - GASTROINTESTINAL HAEMORRHAGE [None]
  - HAEMATEMESIS [None]
  - HEPATIC ENCEPHALOPATHY [None]
  - HEPATIC STEATOSIS [None]
  - HEPATIC TRAUMA [None]
  - HEPATOTOXICITY [None]
  - MULTI-ORGAN FAILURE [None]
  - RENAL FAILURE ACUTE [None]
